FAERS Safety Report 15165233 (Version 1)
Quarter: 2018Q3

REPORT INFORMATION
  Report Type: Spontaneous
  Country: US (occurrence: US)
  Receive Date: 20180719
  Receipt Date: 20180719
  Transmission Date: 20181010
  Serious: No
  Sender: FDA-Public Use
  Company Number: US-CARDINAL HEALTH 418, INC.-2052386

PATIENT
  Age: 75 Year
  Sex: Male
  Weight: 90.91 kg

DRUGS (1)
  1. SODIUM IODIDE I 123 [Suspect]
     Active Substance: SODIUM IODIDE I-123
     Indication: THYROID FUNCTION TEST
     Route: 048
     Dates: start: 20170823, end: 20170823

REACTIONS (1)
  - Drug ineffective [Recovered/Resolved]

NARRATIVE: CASE EVENT DATE: 20170823
